FAERS Safety Report 8492870-5 (Version None)
Quarter: 2012Q3

REPORT INFORMATION
  Report Type: 
  Country: None (occurrence: None)
  Receive Date: 20120706
  Receipt Date: 20120627
  Transmission Date: 20120928
  Serious: Yes (Death)
  Sender: FDA-Public Use
  Company Number: US-JNJFOC-20120506946

PATIENT
  Sex: Female
  Weight: 53.07 kg

DRUGS (5)
  1. PROVENTIL HFA INHALANT [Concomitant]
     Route: 055
  2. PYRIDOSTIGMINE BROMIDE [Concomitant]
     Indication: MYASTHENIA GRAVIS
     Route: 048
  3. PREDNISONE [Suspect]
     Indication: ASTHMA
     Route: 048
  4. ADVAIR DISKUS 100/50 [Concomitant]
     Indication: ASTHMA
     Route: 065
  5. LEVAQUIN [Suspect]
     Indication: BRONCHITIS
     Route: 048
     Dates: start: 20110415

REACTIONS (8)
  - ANXIETY [None]
  - FEAR [None]
  - PANIC DISORDER [None]
  - RESPIRATORY DISTRESS [None]
  - MYASTHENIA GRAVIS [None]
  - DISCOMFORT [None]
  - PAIN [None]
  - DRUG PRESCRIBING ERROR [None]
